FAERS Safety Report 4853877-X (Version None)
Quarter: 2005Q4

REPORT INFORMATION
  Report Type: 
  Country: None (occurrence: None)
  Receive Date: 20051213
  Receipt Date: 20051128
  Transmission Date: 20060501
  Serious: Yes (Other)
  Sender: FDA-Public Use
  Company Number: US200511003098

PATIENT
  Sex: Male

DRUGS (7)
  1. CYMBALTA [Suspect]
     Indication: SHOULDER PAIN
     Dosage: SEE IMAGE
     Dates: start: 20050101, end: 20050101
  2. CYMBALTA [Suspect]
     Indication: SHOULDER PAIN
     Dosage: SEE IMAGE
     Dates: start: 20050101, end: 20051121
  3. CYMBALTA [Suspect]
  4. MORPHINE [Concomitant]
  5. SODIUM SALICYLATE ECT [Concomitant]
  6. TERAZOSIN (TERAZOSIN) [Concomitant]
  7. STOOL SOFTENER (DOCUSATE SODIUM) [Concomitant]

REACTIONS (10)
  - ANGINA PECTORIS [None]
  - DIZZINESS [None]
  - FATIGUE [None]
  - HYPERSOMNIA [None]
  - HYPERTENSION [None]
  - MALAISE [None]
  - ONYCHALGIA [None]
  - ROTATOR CUFF SYNDROME [None]
  - SHOULDER PAIN [None]
  - SKIN DISCOLOURATION [None]
